FAERS Safety Report 18451935 (Version 5)
Quarter: 2023Q2

REPORT INFORMATION
  Report Type: Report from Study
  Country: US (occurrence: US)
  Receive Date: 20201102
  Receipt Date: 20230414
  Transmission Date: 20230722
  Serious: Yes (Life-Threatening, Hospitalization, Other)
  Sender: FDA-Public Use
  Company Number: US-TAKEDA-2020TUS044860

PATIENT
  Sex: Male

DRUGS (14)
  1. IDURSULFASE [Suspect]
     Active Substance: IDURSULFASE
     Indication: Mucopolysaccharidosis II
     Dosage: 0.4 MILLIGRAM/KILOGRAM, 1/WEEK
     Route: 042
     Dates: start: 200701, end: 202009
  2. ACETAMINOPHEN [Concomitant]
     Active Substance: ACETAMINOPHEN
     Indication: Pain
     Dosage: UNK
     Route: 048
     Dates: start: 20180624
  3. DIAZEPAM [Concomitant]
     Active Substance: DIAZEPAM
     Indication: Seizure
     Dosage: UNK
     Route: 054
     Dates: start: 20201203
  4. SENOKOT [Concomitant]
     Active Substance: SENNOSIDES
     Indication: Constipation
     Dosage: UNK
     Route: 050
     Dates: start: 20201230
  5. RISPERDAL [Concomitant]
     Active Substance: RISPERIDONE
     Dosage: UNK
     Route: 050
     Dates: start: 20201230
  6. KEPPRA [Concomitant]
     Active Substance: LEVETIRACETAM
     Dosage: UNK
     Route: 050
     Dates: start: 20210107
  7. MELATONIN [Concomitant]
     Active Substance: MELATONIN
     Indication: Insomnia
     Dosage: UNK
     Route: 048
     Dates: start: 20210205
  8. NYSTATIN [Concomitant]
     Active Substance: NYSTATIN
     Indication: Intertrigo
     Dosage: UNK
     Route: 061
     Dates: start: 20210212
  9. FAMOTIDINE [Concomitant]
     Active Substance: FAMOTIDINE
     Dosage: UNK
     Route: 050
     Dates: start: 20210628
  10. PYRIDOXINE [Concomitant]
     Active Substance: PYRIDOXINE
     Indication: Seizure
     Dosage: UNK
     Route: 050
     Dates: start: 20210802
  11. BUDESONIDE [Concomitant]
     Active Substance: BUDESONIDE
     Indication: Dyspnoea
     Dosage: UNK
     Route: 055
     Dates: start: 20210823
  12. TOPAMAX [Concomitant]
     Active Substance: TOPIRAMATE
     Dosage: UNK
     Route: 048
     Dates: start: 20211005
  13. CATAPRES-TTS [Concomitant]
     Active Substance: CLONIDINE
     Dosage: UNK
     Route: 062
     Dates: start: 20211129
  14. CLONAZEPAM [Concomitant]
     Active Substance: CLONAZEPAM
     Dosage: UNK
     Route: 050
     Dates: start: 20211211

REACTIONS (2)
  - Generalised tonic-clonic seizure [Recovered/Resolved with Sequelae]
  - COVID-19 [Recovered/Resolved]

NARRATIVE: CASE EVENT DATE: 20200923
